FAERS Safety Report 20667602 (Version 2)
Quarter: 2022Q4

REPORT INFORMATION
  Report Type: Spontaneous
  Country: CA (occurrence: CA)
  Receive Date: 20220404
  Receipt Date: 20221129
  Transmission Date: 20230113
  Serious: Yes (Hospitalization, Other)
  Sender: FDA-Public Use
  Company Number: CA-TEVA-2022-CA-2022421

PATIENT
  Age: 24 Year
  Sex: Male

DRUGS (6)
  1. CAPECITABINE [Suspect]
     Active Substance: CAPECITABINE
     Indication: Neoplasm malignant
     Route: 065
  2. CAPECITABINE [Suspect]
     Active Substance: CAPECITABINE
     Indication: Adenocarcinoma gastric
  3. CISPLATIN [Suspect]
     Active Substance: CISPLATIN
     Indication: Neoplasm malignant
     Route: 065
  4. CISPLATIN [Suspect]
     Active Substance: CISPLATIN
     Indication: Adenocarcinoma gastric
  5. EPIRUBICIN HYDROCHLORIDE [Suspect]
     Active Substance: EPIRUBICIN HYDROCHLORIDE
     Indication: Neoplasm malignant
     Route: 065
  6. CARBAGLU [Suspect]
     Active Substance: CARGLUMIC ACID
     Indication: Hyperammonaemic encephalopathy
     Dosage: 150 MG/KG DAILY;
     Route: 065

REACTIONS (4)
  - Delirium [Unknown]
  - Hyperammonaemic encephalopathy [Unknown]
  - Rebound effect [Unknown]
  - Off label use [Unknown]
